FAERS Safety Report 5461529-0 (Version None)
Quarter: 2007Q3

REPORT INFORMATION
  Report Type: 
  Country: None (occurrence: None)
  Receive Date: 20070920
  Receipt Date: 20061109
  Transmission Date: 20080115
  Serious: No
  Sender: FDA-Public Use
  Company Number: A0625284A

PATIENT
  Age: 79 Year
  Sex: Male

DRUGS (1)
  1. ABREVA [Suspect]
     Dosage: 1APP UNKNOWN
     Route: 061
     Dates: start: 20061010, end: 20061025

REACTIONS (1)
  - DRUG INEFFECTIVE [None]
